FAERS Safety Report 24210614 (Version 1)
Quarter: 2024Q3

REPORT INFORMATION
  Report Type: Spontaneous
  Country: CH (occurrence: CH)
  Receive Date: 20240814
  Receipt Date: 20240814
  Transmission Date: 20241017
  Serious: Yes (Hospitalization, Other)
  Sender: BRISTOL MYERS SQUIBB
  Company Number: None

PATIENT
  Age: 78 Year
  Sex: Female
  Weight: 50.3 kg

DRUGS (8)
  1. NIVOLUMAB [Suspect]
     Active Substance: NIVOLUMAB
     Indication: Malignant melanoma
     Dosage: AS AN INFUSION
     Route: 040
     Dates: start: 20240430, end: 20240625
  2. ROSUVASTATIN CALCIUM [Suspect]
     Active Substance: ROSUVASTATIN CALCIUM
     Indication: Product used for unknown indication
     Dosage: ROSUVASTATIN SANDOZ 10 MG TABLET: 2-0-0-0
     Route: 048
     Dates: end: 20240708
  3. BISOPROLOL MEPHA [Concomitant]
     Indication: Product used for unknown indication
     Route: 050
  4. TORSEMIDE [Concomitant]
     Active Substance: TORSEMIDE
     Indication: Product used for unknown indication
     Dosage: 10 MG 1/2-0-0-0 WITH A WEIGHT OF OVER 49 KG
     Route: 048
  5. ALDACTONE [Concomitant]
     Active Substance: SPIRONOLACTONE
     Indication: Product used for unknown indication
     Dosage: ALDACTONE 50 MG TABLET: 0.5-0-0-0
  6. DAPAGLIFLOZIN [Concomitant]
     Active Substance: DAPAGLIFLOZIN
     Indication: Product used for unknown indication
     Route: 048
  7. PANTOZOL [Concomitant]
     Active Substance: PANTOPRAZOLE SODIUM
     Indication: Product used for unknown indication
     Route: 048
  8. XARELTO [Concomitant]
     Active Substance: RIVAROXABAN
     Indication: Atrial fibrillation

REACTIONS (5)
  - Hypercalcaemia [Recovered/Resolved]
  - Hepatitis [Recovering/Resolving]
  - Cholestasis [Recovering/Resolving]
  - Metastatic malignant melanoma [Unknown]
  - Plasma cell myeloma [Unknown]

NARRATIVE: CASE EVENT DATE: 20240704
